FAERS Safety Report 23602063 (Version 3)
Quarter: 2025Q1

REPORT INFORMATION
  Report Type: Spontaneous
  Country: US (occurrence: US)
  Receive Date: 20240306
  Receipt Date: 20250108
  Transmission Date: 20250408
  Serious: No
  Sender: SANOFI AVENTIS
  Company Number: US-SA-SAC20240229000193

PATIENT
  Age: 35 Year
  Sex: Female

DRUGS (25)
  1. DUPIXENT [Suspect]
     Active Substance: DUPILUMAB
     Indication: Eosinophilic oesophagitis
     Dosage: 300 MG, QW
     Route: 058
     Dates: start: 20240205
  2. DUPIXENT [Suspect]
     Active Substance: DUPILUMAB
     Route: 058
     Dates: start: 202402
  3. OMEPRAZOLE [Concomitant]
     Active Substance: OMEPRAZOLE
  4. OMEPRAZOLE [Concomitant]
     Active Substance: OMEPRAZOLE
  5. PHENTERMINE [Concomitant]
     Active Substance: PHENTERMINE
  6. PHENTERMINE [Concomitant]
     Active Substance: PHENTERMINE
  7. FLUOXETINE [Concomitant]
     Active Substance: FLUOXETINE HYDROCHLORIDE
  8. FLUOXETINE [Concomitant]
     Active Substance: FLUOXETINE HYDROCHLORIDE
  9. BUSPIRONE [Concomitant]
     Active Substance: BUSPIRONE HYDROCHLORIDE
  10. BUSPIRONE [Concomitant]
     Active Substance: BUSPIRONE HYDROCHLORIDE
  11. NORETHINDRONE [Concomitant]
     Active Substance: NORETHINDRONE
  12. VITAMIN D3 [Concomitant]
     Active Substance: CHOLECALCIFEROL
  13. COBAMAMIDE [Concomitant]
     Active Substance: COBAMAMIDE
  14. ZINC [Concomitant]
     Active Substance: ZINC
  15. ZOFRAN [Concomitant]
     Active Substance: ONDANSETRON HYDROCHLORIDE
  16. PROPRANOLOL [Concomitant]
     Active Substance: PROPRANOLOL HYDROCHLORIDE
  17. PROPRANOLOL [Concomitant]
     Active Substance: PROPRANOLOL HYDROCHLORIDE
  18. LORAZEPAM [Concomitant]
     Active Substance: LORAZEPAM
  19. LORAZEPAM [Concomitant]
     Active Substance: LORAZEPAM
  20. HYDROXYZINE [Concomitant]
     Active Substance: HYDROXYZINE HYDROCHLORIDE
  21. VITAMINS [Concomitant]
     Active Substance: VITAMINS
  22. HERBALS\WITHANIA SOMNIFERA ROOT [Concomitant]
     Active Substance: HERBALS\WITHANIA SOMNIFERA ROOT
  23. CEQUA [Concomitant]
     Active Substance: CYCLOSPORINE
  24. AIMOVIG [Concomitant]
     Active Substance: ERENUMAB-AOOE
  25. ASCORBIC ACID\ZINC [Concomitant]
     Active Substance: ASCORBIC ACID\ZINC

REACTIONS (4)
  - Pain [Unknown]
  - Dry eye [Unknown]
  - Product storage error [Unknown]
  - Poor quality product administered [Unknown]

NARRATIVE: CASE EVENT DATE: 20240201
